FAERS Safety Report 6022178-9 (Version None)
Quarter: 2008Q4

REPORT INFORMATION
  Report Type: 
  Country: None (occurrence: None)
  Receive Date: 20081223
  Receipt Date: 20081208
  Transmission Date: 20090506
  Serious: Yes (Death, Life-Threatening)
  Sender: FDA-Public Use
  Company Number: 2008S1021790

PATIENT
  Age: 68 Year
  Sex: Female

DRUGS (1)
  1. TAMOXIFEN CITRATE [Suspect]
     Indication: BREAST CANCER
     Dosage: 20 MG; ORAL
     Route: 048
     Dates: start: 20061101, end: 20080924

REACTIONS (3)
  - CARDIAC ARREST [None]
  - NASOPHARYNGITIS [None]
  - PULMONARY EMBOLISM [None]
